FAERS Safety Report 7683669 (Version 3)
Quarter: 2012Q4

REPORT INFORMATION
  Report Type: 
  Country: US (occurrence: US)
  Receive Date: 20101125
  Receipt Date: 20121022
  Transmission Date: 20130627
  Serious: Yes (Hospitalization, Other)
  Sender: FDA-Public Use
  Company Number: US-PFIZER INC-2010154894

PATIENT
  Age: 25 Year
  Sex: Male

DRUGS (4)
  1. CLINDAMYCIN HCL [Suspect]
     Indication: PHARYNGITIS STREPTOCOCCAL
     Dosage: UNK
  2. CLINDAMYCIN HCL [Suspect]
     Indication: PERITONSILLAR ABSCESS
  3. METHYLPREDNISOLONE [Concomitant]
     Indication: PHARYNGITIS STREPTOCOCCAL
     Dosage: UNK
  4. METHYLPREDNISOLONE [Concomitant]
     Indication: PERITONSILLAR ABSCESS

REACTIONS (1)
  - Drug reaction with eosinophilia and systemic symptoms [Recovered/Resolved]
